FAERS Safety Report 16001319 (Version 2)
Quarter: 2019Q1

REPORT INFORMATION
  Report Type: Spontaneous
  Country: US (occurrence: US)
  Receive Date: 20190225
  Receipt Date: 20190304
  Transmission Date: 20190418
  Serious: Yes (Other)
  Sender: FDA-Public Use
  Company Number: US-ASTRAZENECA-2018SF35010

PATIENT
  Sex: Female
  Weight: 88.5 kg

DRUGS (5)
  1. LISINOPRIL. [Concomitant]
     Active Substance: LISINOPRIL
  2. ALPRAZOLAM. [Concomitant]
     Active Substance: ALPRAZOLAM
  3. NEXIUM [Suspect]
     Active Substance: ESOMEPRAZOLE MAGNESIUM
     Route: 048
     Dates: start: 20090316, end: 20090731
  4. GABAPENTIN. [Concomitant]
     Active Substance: GABAPENTIN
  5. TRIAZOLAM. [Concomitant]
     Active Substance: TRIAZOLAM

REACTIONS (3)
  - Renal injury [Unknown]
  - Chronic kidney disease [Unknown]
  - Renal failure [Unknown]
